FAERS Safety Report 12881275 (Version 2)
Quarter: 2016Q4

REPORT INFORMATION
  Report Type: Spontaneous
  Country: US (occurrence: US)
  Receive Date: 20161025
  Receipt Date: 20161202
  Transmission Date: 20170207
  Serious: No
  Sender: FDA-Public Use
  Company Number: US-JNJFOC-20160906689

PATIENT
  Age: 32 Year
  Sex: Male
  Weight: 79.38 kg

DRUGS (4)
  1. RISPERDAL CONSTA [Suspect]
     Active Substance: RISPERIDONE
     Indication: SCHIZOPHRENIA
     Route: 030
  2. LITHIUM. [Concomitant]
     Active Substance: LITHIUM
     Route: 048
  3. RISPERDAL [Concomitant]
     Active Substance: RISPERIDONE
     Route: 048
  4. COGENTIN [Concomitant]
     Active Substance: BENZTROPINE MESYLATE
     Route: 065

REACTIONS (3)
  - Device malfunction [Unknown]
  - Device leakage [Unknown]
  - Drug dose omission [Unknown]

NARRATIVE: CASE EVENT DATE: 20160902
